FAERS Safety Report 21884129 (Version 1)
Quarter: 2023Q1

REPORT INFORMATION
  Report Type: Spontaneous
  Country: US (occurrence: None)
  Receive Date: 20230118
  Receipt Date: 20230118
  Transmission Date: 20230417
  Serious: No
  Sender: FDA-Public Use
  Company Number: None

PATIENT
  Age: 61 Year
  Sex: Female

DRUGS (1)
  1. IBREXAFUNGERP [Suspect]
     Active Substance: IBREXAFUNGERP
     Route: 048

REACTIONS (1)
  - Lipase increased [None]
